FAERS Safety Report 14621585 (Version 1)
Quarter: 2018Q1

REPORT INFORMATION
  Report Type: Spontaneous
  Country: US (occurrence: US)
  Receive Date: 20180310
  Receipt Date: 20180310
  Transmission Date: 20180509
  Serious: No
  Sender: FDA-Public Use
  Company Number: US-JNJFOC-20180232741

PATIENT
  Sex: Female

DRUGS (1)
  1. TRINESSA [Suspect]
     Active Substance: ETHINYL ESTRADIOL\NORGESTIMATE
     Indication: CONTRACEPTION
     Dosage: STRENGTH: 0.180, 0.215, 0.250 PLUS 0.035 MG
     Route: 065
     Dates: start: 20180129

REACTIONS (1)
  - Menorrhagia [Unknown]

NARRATIVE: CASE EVENT DATE: 20180206
